FAERS Safety Report 9473384 (Version 1)
Quarter: 2013Q3

REPORT INFORMATION
  Report Type: Spontaneous
  Country: US (occurrence: US)
  Receive Date: 20130823
  Receipt Date: 20130823
  Transmission Date: 20140515
  Serious: Yes (Other)
  Sender: FDA-Public Use
  Company Number: US-JNJFOC-20130807203

PATIENT
  Sex: Female
  Weight: 64.41 kg

DRUGS (2)
  1. XARELTO [Suspect]
     Indication: THROMBOSIS
     Dosage: COULD NOT REMEMBER IF SHE??USED THE 10MG OR 15MG DOSE
     Route: 048
     Dates: start: 2013, end: 2013
  2. XARELTO [Suspect]
     Indication: THROMBOSIS
     Route: 048
     Dates: start: 2013

REACTIONS (4)
  - Thrombosis [Not Recovered/Not Resolved]
  - Contusion [Not Recovered/Not Resolved]
  - Incorrect dose administered [Unknown]
  - Chills [Not Recovered/Not Resolved]
